FAERS Safety Report 11012468 (Version 1)
Quarter: 2015Q1

REPORT INFORMATION
  Report Type: Spontaneous
  Country: US (occurrence: None)
  Receive Date: 20150331
  Receipt Date: 20150331
  Transmission Date: 20150721
  Serious: Yes (Other)
  Sender: FDA-Public Use
  Company Number: 1713747-2015-99915

PATIENT
  Age: 48 Year
  Sex: Male
  Weight: 86 kg

DRUGS (14)
  1. HUMALOG [Concomitant]
     Active Substance: INSULIN LISPRO
  2. SYNTHROID [Concomitant]
     Active Substance: LEVOTHYROXINE SODIUM
  3. TYLENOL [Concomitant]
     Active Substance: ACETAMINOPHEN
  4. COREG [Concomitant]
     Active Substance: CARVEDILOL
  5. ASPIRIN. [Suspect]
     Active Substance: ASPIRIN
  6. ZOCOR [Concomitant]
     Active Substance: SIMVASTATIN
  7. DELFLEX [Suspect]
     Active Substance: CALCIUM CHLORIDE\DEXTROSE MONOHYDRATE\MAGNESIUM CHLORIDE\SODIUM CHLORIDE\SODIUM LACTATE
     Indication: CHRONIC KIDNEY DISEASE
     Dosage: PERITONEAL DIALYSIS
     Dates: start: 20130628
  8. ZOFRAN [Concomitant]
     Active Substance: ONDANSETRON HYDROCHLORIDE
  9. ISOSORBIDE DINITRATE. [Suspect]
     Active Substance: ISOSORBIDE DINITRATE
  10. COLACE [Concomitant]
     Active Substance: DOCUSATE SODIUM
  11. PEPCID [Concomitant]
     Active Substance: FAMOTIDINE
  12. AMBIEN [Concomitant]
     Active Substance: ZOLPIDEM TARTRATE
  13. HYDRALAZINE [Suspect]
     Active Substance: HYDRALAZINE HYDROCHLORIDE
  14. LOSARTAN [Suspect]
     Active Substance: LOSARTAN

REACTIONS (1)
  - Peritonitis [None]

NARRATIVE: CASE EVENT DATE: 20130628
